FAERS Safety Report 12603041 (Version 1)
Quarter: 2016Q3

REPORT INFORMATION
  Report Type: Spontaneous
  Country: IT (occurrence: IT)
  Receive Date: 20160728
  Receipt Date: 20160728
  Transmission Date: 20161109
  Serious: Yes (Hospitalization)
  Sender: FDA-Public Use
  Company Number: IT-PFIZER INC-2016357993

PATIENT
  Age: 52 Year
  Sex: Female

DRUGS (4)
  1. METHOTREXATE SODIUM. [Suspect]
     Active Substance: METHOTREXATE SODIUM
     Indication: DERMATOMYOSITIS
     Dosage: 15 MG, TOTAL
     Route: 048
     Dates: start: 20160712, end: 20160712
  2. PLAQUENIL /00072602/ [Concomitant]
     Active Substance: HYDROXYCHLOROQUINE DIPHOSPHATE
     Dosage: 200 MG, UNK
     Route: 048
  3. HIZENTRA [Concomitant]
     Active Substance: HUMAN IMMUNOGLOBULIN G
     Dosage: 6 DF, UNK
     Route: 030
  4. TAVOR (LORAZEPAM) [Suspect]
     Active Substance: LORAZEPAM
     Indication: ANXIETY
     Dosage: 15 MG, TOTAL
     Route: 048
     Dates: start: 20160712, end: 20160712

REACTIONS (2)
  - Intentional overdose [Recovered/Resolved]
  - Psychomotor retardation [Recovered/Resolved]

NARRATIVE: CASE EVENT DATE: 20160712
